FAERS Safety Report 7788662-2 (Version None)
Quarter: 2011Q3

REPORT INFORMATION
  Report Type: 
  Country: None (occurrence: None)
  Receive Date: 20110930
  Receipt Date: 20110922
  Transmission Date: 20111222
  Serious: Yes (Hospitalization)
  Sender: FDA-Public Use
  Company Number: US-SANOFI-AVENTIS-2011SA054241

PATIENT
  Age: 83 Year
  Sex: Female
  Weight: 64 kg

DRUGS (9)
  1. BLINDED THERAPY [Suspect]
     Indication: ATRIAL FIBRILLATION
     Route: 048
     Dates: start: 20110718
  2. AVALIDE [Suspect]
     Route: 048
     Dates: start: 20000210
  3. METOPROLOL TARTRATE [Suspect]
     Route: 048
     Dates: start: 20110527
  4. MULTI-VITAMINS [Concomitant]
     Route: 048
     Dates: start: 20050801
  5. SIMVASTATIN [Concomitant]
     Route: 048
     Dates: start: 20080919
  6. VERELAN [Concomitant]
     Route: 048
     Dates: start: 20050418
  7. FISH OIL [Concomitant]
     Route: 048
     Dates: start: 20080901
  8. DABIGATRAN [Suspect]
     Route: 048
     Dates: start: 20110527
  9. ALDACTONE [Concomitant]
     Route: 048
     Dates: start: 20070425, end: 20110717

REACTIONS (1)
  - PLEURAL EFFUSION [None]
